FAERS Safety Report 19085232 (Version 1)
Quarter: 2021Q2

REPORT INFORMATION
  Report Type: Report from Study
  Country: CA (occurrence: CA)
  Receive Date: 20210401
  Receipt Date: 20210401
  Transmission Date: 20210717
  Serious: Yes (Other)
  Sender: FDA-Public Use
  Company Number: CA-PFIZER INC-2021334799

PATIENT
  Age: 62 Year
  Sex: Female

DRUGS (5)
  1. BETAMETHASONE VALERATE/CLOTRIMAZOLE [Concomitant]
     Dosage: UNK
     Route: 061
  2. METHOTREXATE SODIUM. [Suspect]
     Active Substance: METHOTREXATE SODIUM
     Dosage: 2.5 MG, 3X/DAY
     Route: 048
  3. HUMIRA [Concomitant]
     Active Substance: ADALIMUMAB
  4. BETAMETHASONE DIPROPIONATE/CALCIPOTRIOL [Concomitant]
     Active Substance: BETAMETHASONE DIPROPIONATE\CALCIPOTRIENE
     Route: 061
  5. METHOTREXATE SODIUM. [Suspect]
     Active Substance: METHOTREXATE SODIUM
     Dosage: 20 MG, WEEKLY
     Route: 058

REACTIONS (9)
  - Treatment failure [Unknown]
  - Psoriasis [Unknown]
  - Vomiting [Unknown]
  - Pain [Unknown]
  - Pruritus [Unknown]
  - Anxiety [Unknown]
  - Drug intolerance [Unknown]
  - Nausea [Unknown]
  - Pain of skin [Unknown]
